FAERS Safety Report 7557545-5 (Version None)
Quarter: 2011Q2

REPORT INFORMATION
  Report Type: 
  Country: None (occurrence: None)
  Receive Date: 20110620
  Receipt Date: 20110614
  Transmission Date: 20111010
  Serious: Yes (Other)
  Sender: FDA-Public Use
  Company Number: US-PFIZER INC-2011130624

PATIENT
  Sex: Female
  Weight: 74.376 kg

DRUGS (3)
  1. AROMASIN [Suspect]
     Indication: BREAST CANCER
     Dosage: 25 MG, 1X/DAY
     Dates: start: 20070601
  2. LIPITOR [Concomitant]
     Indication: BLOOD CHOLESTEROL INCREASED
     Dosage: UNK
  3. CALCIUM CARBONATE/RISEDRONATE SODIUM [Concomitant]
     Indication: BONE DISORDER
     Dosage: UNK

REACTIONS (1)
  - HYPERTENSION [None]
